FAERS Safety Report 9687541 (Version 1)
Quarter: 2013Q4

REPORT INFORMATION
  Report Type: Spontaneous
  Country: US (occurrence: US)
  Receive Date: 20131114
  Receipt Date: 20131114
  Transmission Date: 20140711
  Serious: No
  Sender: FDA-Public Use
  Company Number: US-009507513-1311USA003024

PATIENT
  Age: 22 Year
  Sex: Female
  Weight: 91.16 kg

DRUGS (1)
  1. NUVARING [Suspect]
     Indication: CONTRACEPTION
     Dosage: 1 DF, QM
     Route: 067
     Dates: start: 201309

REACTIONS (2)
  - Menstruation irregular [Unknown]
  - Metrorrhagia [Unknown]
